FAERS Safety Report 9527659 (Version 1)
Quarter: 2013Q1

REPORT INFORMATION
  Report Type: Spontaneous
  Country: US (occurrence: None)
  Receive Date: 20130314
  Receipt Date: 20130314
  Transmission Date: 20140127
  Serious: No
  Sender: FDA-Public Use
  Company Number: 1212USA002861

PATIENT
  Age: 59 Year
  Sex: Male

DRUGS (3)
  1. VICTRELIS [Suspect]
     Indication: HEPATITIS C
     Dosage: 800 MG, TID, ORAL
     Route: 048
     Dates: start: 20121202
  2. PEGASYS [Suspect]
  3. RIBASPHERE [Suspect]

REACTIONS (8)
  - White blood cell count decreased [None]
  - Constipation [None]
  - Back pain [None]
  - Decreased appetite [None]
  - Platelet count decreased [None]
  - Nausea [None]
  - Fatigue [None]
  - Dysgeusia [None]
